APPROVED DRUG PRODUCT: PIROXICAM
Active Ingredient: PIROXICAM
Strength: 20MG
Dosage Form/Route: CAPSULE;ORAL
Application: A074118 | Product #001 | TE Code: AB
Applicant: SOLIS PHARMACEUTICALS INC
Approved: Jun 15, 1993 | RLD: No | RS: No | Type: RX